FAERS Safety Report 4396761-0 (Version None)
Quarter: 2004Q3

REPORT INFORMATION
  Report Type: 
  Country: None (occurrence: None)
  Receive Date: 20040714
  Receipt Date: 20040705
  Transmission Date: 20050211
  Serious: Yes (Other)
  Sender: FDA-Public Use
  Company Number: 200412259JP

PATIENT
  Age: 36 Year
  Sex: Female

DRUGS (3)
  1. KETEK [Suspect]
     Indication: BRONCHITIS ACUTE
     Route: 048
     Dates: start: 20040624, end: 20040629
  2. LIGHTGEN T [Concomitant]
     Indication: BRONCHITIS ACUTE
     Route: 048
     Dates: start: 20040624, end: 20040628
  3. DAN RICH [Concomitant]
     Indication: BRONCHITIS ACUTE
     Dosage: DOSE: UNK
     Route: 048
     Dates: start: 20040624, end: 20040628

REACTIONS (2)
  - SWOLLEN TONGUE [None]
  - VISION BLURRED [None]
